FAERS Safety Report 6381344-3 (Version None)
Quarter: 2009Q3

REPORT INFORMATION
  Report Type: 
  Country: None (occurrence: None)
  Receive Date: 20090929
  Receipt Date: 20090928
  Transmission Date: 20100115
  Serious: No
  Sender: FDA-Public Use
  Company Number: US-ROXANE LABORATORIES, INC.-2009-RO-00914RO

PATIENT
  Sex: Male

DRUGS (5)
  1. FLUTICASONE [Suspect]
     Indication: HYPERSENSITIVITY
     Route: 045
  2. FLOVENT [Concomitant]
     Indication: ASTHMA
  3. XOPENEX [Concomitant]
     Indication: ASTHMA
  4. ALLOPURINOL [Concomitant]
     Indication: NEPHROLITHIASIS
  5. DALMANE [Concomitant]
     Indication: ANXIETY

REACTIONS (2)
  - INFECTION [None]
  - PRODUCT ODOUR ABNORMAL [None]
